FAERS Safety Report 4472642-9 (Version None)
Quarter: 2004Q4

REPORT INFORMATION
  Report Type: 
  Country: None (occurrence: None)
  Receive Date: 20041008
  Receipt Date: 20040922
  Transmission Date: 20050328
  Serious: Yes (Hospitalization)
  Sender: FDA-Public Use
  Company Number: DSA_25030_2004

PATIENT
  Age: 38 Year
  Sex: Male

DRUGS (2)
  1. TAVOR [Suspect]
     Dosage: 10 MG ONCE PO
     Route: 048
     Dates: start: 20040917, end: 20040917
  2. OXYCODONE [Suspect]
     Dosage: 300 MG ONCE PO
     Route: 048
     Dates: start: 20040917, end: 20040917

REACTIONS (3)
  - MIOSIS [None]
  - MULTIPLE DRUG OVERDOSE INTENTIONAL [None]
  - SOMNOLENCE [None]
